FAERS Safety Report 10460039 (Version 2)
Quarter: 2014Q4

REPORT INFORMATION
  Report Type: Report from Study
  Country: AR (occurrence: AR)
  Receive Date: 20140917
  Receipt Date: 20141223
  Transmission Date: 20150528
  Serious: Yes (Death, Other)
  Sender: FDA-Public Use
  Company Number: AR-ABBVIE-14K-007-1283639-00

PATIENT
  Age: 62 Year
  Sex: Female

DRUGS (1)
  1. HUMIRA [Suspect]
     Active Substance: ADALIMUMAB
     Indication: PSORIASIS
     Route: 058
     Dates: start: 20120115

REACTIONS (2)
  - Aortic surgery [Fatal]
  - Aortic dissection [Unknown]

NARRATIVE: CASE EVENT DATE: 20141128
